FAERS Safety Report 17247244 (Version 1)
Quarter: 2020Q1

REPORT INFORMATION
  Report Type: Spontaneous
  Country: US (occurrence: US)
  Receive Date: 20200107
  Receipt Date: 20200107
  Transmission Date: 20200409
  Serious: Yes (Hospitalization)
  Sender: FDA-Public Use
  Company Number: None

PATIENT
  Age: 73 Year
  Sex: Female

DRUGS (5)
  1. XELJANZ [Suspect]
     Active Substance: TOFACITINIB CITRATE
     Indication: RHEUMATOID ARTHRITIS
     Route: 048
     Dates: start: 20180124
  2. LISINOPRIL TAB 40 MG [Concomitant]
  3. METOPROLOL SUC TAB 50 MG ER [Concomitant]
  4. NEFEDIPINE TAB 30 MG ER [Concomitant]
  5. SIMVASTATIN TAB 10 MG [Concomitant]

REACTIONS (5)
  - Hypoaesthesia [None]
  - Abdominal discomfort [None]
  - Pain [None]
  - Nerve block [None]
  - Bladder disorder [None]
